FAERS Safety Report 7350715-0 (Version None)
Quarter: 2011Q1

REPORT INFORMATION
  Report Type: 
  Country: None (occurrence: None)
  Receive Date: 20110222
  Receipt Date: 20101221
  Transmission Date: 20110831
  Serious: No
  Sender: FDA-Public Use
  Company Number: 021801

PATIENT
  Sex: Male
  Weight: 102 kg

DRUGS (3)
  1. DILANTIN [Concomitant]
  2. LACOSAMIDE [Suspect]
     Indication: CONVULSION
     Dosage: (200 MG BID ORAL)
     Route: 048
     Dates: start: 20100824
  3. TOPAMAX [Concomitant]

REACTIONS (4)
  - HOT FLUSH [None]
  - HYPERHIDROSIS [None]
  - DECREASED APPETITE [None]
  - NASOPHARYNGITIS [None]
